FAERS Safety Report 10471645 (Version 1)
Quarter: 2014Q3

REPORT INFORMATION
  Report Type: Report from Study
  Country: US (occurrence: US)
  Receive Date: 20140923
  Receipt Date: 20140923
  Transmission Date: 20150326
  Serious: No
  Sender: FDA-Public Use
  Company Number: US-ALEXION-A200700300

PATIENT
  Sex: Female

DRUGS (3)
  1. LACTULOSE. [Suspect]
     Active Substance: LACTULOSE
     Dosage: UNK
  2. SOLIRIS [Suspect]
     Active Substance: ECULIZUMAB
     Indication: PAROXYSMAL NOCTURNAL HAEMOGLOBINURIA
     Dosage: UNK
     Route: 042
  3. LACTULOSE. [Suspect]
     Active Substance: LACTULOSE
     Indication: AMMONIA INCREASED
     Dosage: UNK

REACTIONS (10)
  - Ammonia increased [Recovering/Resolving]
  - Movement disorder [Recovering/Resolving]
  - Platelet count decreased [Unknown]
  - Haematocrit decreased [Unknown]
  - Confusional state [Recovering/Resolving]
  - Rash [Unknown]
  - Diarrhoea [Unknown]
  - Anxiety [Unknown]
  - Vomiting [Recovering/Resolving]
  - Malaise [Unknown]
